FAERS Safety Report 8248795-3 (Version None)
Quarter: 2012Q1

REPORT INFORMATION
  Report Type: 
  Country: None (occurrence: None)
  Receive Date: 20120331
  Receipt Date: 20120323
  Transmission Date: 20120608
  Serious: Yes (Death, Other)
  Sender: FDA-Public Use
  Company Number: PHEH2012US000691

PATIENT
  Sex: Male

DRUGS (12)
  1. ALPRAZOLAM [Suspect]
     Dosage: UNK UKN, OT
  2. TIZANIDINE HCL [Concomitant]
     Dosage: 4 MG, UNK
  3. IBUPROFEN [Concomitant]
  4. HEROIN [Suspect]
     Dosage: UNK UKN, OT
  5. GILENYA [Suspect]
     Indication: MULTIPLE SCLEROSIS
     Dosage: 0.5 MG, QD
     Route: 048
     Dates: start: 20101230
  6. GABAPENTIN [Concomitant]
     Dosage: 800 MG, UNK
  7. TAMSULOSIN HCL [Concomitant]
     Dosage: 0.4 MG, UNK
  8. CYCLOBENZAPRINE HCL [Suspect]
     Dosage: UNK UKN, OT
  9. VITAMIN D [Concomitant]
  10. LISINOPRIL [Concomitant]
     Dosage: 10 MG, UNK
  11. PRILOSEC [Concomitant]
     Indication: GASTROOESOPHAGEAL REFLUX DISEASE
     Dosage: 20 MG/DAY
  12. FLOMAX [Concomitant]
     Indication: POLLAKIURIA
     Dosage: 0.4 MG, UNK
     Dates: start: 20101117

REACTIONS (10)
  - LEFT VENTRICULAR HYPERTROPHY [None]
  - MUSCLE SPASMS [None]
  - CARDIOMEGALY [None]
  - PAIN IN EXTREMITY [None]
  - BLADDER OUTLET OBSTRUCTION [None]
  - NEUROGENIC BLADDER [None]
  - POLLAKIURIA [None]
  - TOXICITY TO VARIOUS AGENTS [None]
  - HYPERTENSIVE HEART DISEASE [None]
  - DRUG ABUSE [None]
